FAERS Safety Report 7513587-7 (Version None)
Quarter: 2011Q2

REPORT INFORMATION
  Report Type: 
  Country: None (occurrence: None)
  Receive Date: 20110531
  Receipt Date: 20110518
  Transmission Date: 20111010
  Serious: Yes (Hospitalization, Other)
  Sender: FDA-Public Use
  Company Number: US-BAYER-2011-023412

PATIENT
  Age: 19 Year
  Sex: Female
  Weight: 95.238 kg

DRUGS (3)
  1. YAZ [Suspect]
     Indication: DYSMENORRHOEA
  2. YAZ [Suspect]
     Indication: PREMENSTRUAL SYNDROME
     Dosage: UNK
     Dates: start: 20070820, end: 20090318
  3. YAZ [Suspect]
     Indication: CYST

REACTIONS (4)
  - CHOLECYSTECTOMY [None]
  - EMOTIONAL DISTRESS [None]
  - MALAISE [None]
  - PAIN [None]
